FAERS Safety Report 10284718 (Version 2)
Quarter: 2014Q3

REPORT INFORMATION
  Report Type: Spontaneous
  Country: DE (occurrence: DE)
  Receive Date: 20140708
  Receipt Date: 20140708
  Transmission Date: 20150326
  Serious: Yes (Other)
  Sender: FDA-Public Use
  Company Number: DE-009507513-1406DEU009459

PATIENT
  Age: 47 Year
  Sex: Female
  Weight: 54 kg

DRUGS (2)
  1. AERIUS [Suspect]
     Active Substance: DESLORATADINE
     Indication: EYE INFLAMMATION
     Dosage: 2.5 MG, QD
     Route: 048
     Dates: start: 20140512, end: 20140513
  2. AERIUS [Suspect]
     Active Substance: DESLORATADINE
     Indication: HOUSE DUST ALLERGY

REACTIONS (1)
  - Alopecia [Recovering/Resolving]

NARRATIVE: CASE EVENT DATE: 20140513
